FAERS Safety Report 4588596-0 (Version None)
Quarter: 2005Q1

REPORT INFORMATION
  Report Type: 
  Country: None (occurrence: None)
  Receive Date: 20050222
  Receipt Date: 20050126
  Transmission Date: 20050727
  Serious: Yes (Hospitalization)
  Sender: FDA-Public Use
  Company Number: BE-ROCHE-393672

PATIENT
  Age: 27 Year
  Sex: Male

DRUGS (2)
  1. PEGASYS [Suspect]
     Route: 058
     Dates: start: 20041130, end: 20050115
  2. COPEGUS [Suspect]
     Route: 048
     Dates: start: 20041130, end: 20050115

REACTIONS (2)
  - ENCEPHALOPATHY [None]
  - EPILEPSY [None]
